FAERS Safety Report 6357527-5 (Version None)
Quarter: 2009Q3

REPORT INFORMATION
  Report Type: 
  Country: None (occurrence: None)
  Receive Date: 20090916
  Receipt Date: 20090909
  Transmission Date: 20100115
  Serious: Yes (Hospitalization, Other)
  Sender: FDA-Public Use
  Company Number: GB-ROXANE LABORATORIES, INC.-2009-RO-00918RO

PATIENT
  Age: 21 Year
  Sex: Male

DRUGS (17)
  1. AZATHIOPRINE [Suspect]
     Indication: COLITIS ULCERATIVE
     Dosage: 25 MG
     Dates: start: 20050901
  2. AZATHIOPRINE [Suspect]
  3. AZATHIOPRINE [Suspect]
     Dosage: 150 MG
  4. AZATHIOPRINE [Suspect]
     Dosage: 100 MG
  5. PREDNISOLONE [Suspect]
     Indication: COLITIS ULCERATIVE
     Route: 048
  6. PREDNISOLONE [Suspect]
     Dosage: 40 MG
     Route: 048
  7. ASACOL [Suspect]
     Indication: COLITIS ULCERATIVE
     Dosage: 1600 MG
  8. ASACOL [Suspect]
     Dosage: 4.8 G
     Route: 048
  9. ASACOL [Suspect]
     Route: 054
  10. HYDROCORTISONE [Suspect]
     Indication: COLITIS ULCERATIVE
     Route: 042
  11. HYDROCORTISONE [Suspect]
     Route: 054
  12. COTRIM [Suspect]
     Indication: PNEUMOCYSTIS JIROVECI PNEUMONIA
     Dosage: 9.6 G
     Route: 042
  13. COTRIM [Suspect]
     Route: 048
  14. INTRAVENOUS AND RECTAL STEROIDS [Concomitant]
     Indication: COLITIS ULCERATIVE
     Route: 042
     Dates: start: 20050601
  15. INTRAVENOUS AND RECTAL STEROIDS [Concomitant]
     Route: 054
     Dates: start: 20050601
  16. CLINDAMYCIN [Concomitant]
     Indication: PNEUMOCYSTIS JIROVECI PNEUMONIA
     Dosage: 1800 MG
     Route: 048
  17. PRIMAQUINE [Concomitant]
     Indication: PNEUMOCYSTIS JIROVECI PNEUMONIA
     Dosage: 30 MG

REACTIONS (6)
  - ANAL FISSURE [None]
  - DRUG INEFFECTIVE [None]
  - LEUKOPENIA [None]
  - PNEUMOCYSTIS JIROVECI PNEUMONIA [None]
  - PNEUMOMEDIASTINUM [None]
  - RASH [None]
